FAERS Safety Report 9358076 (Version 1)
Quarter: 2013Q2

REPORT INFORMATION
  Report Type: Spontaneous
  Country: US (occurrence: US)
  Receive Date: 20130620
  Receipt Date: 20130620
  Transmission Date: 20140414
  Serious: Yes (Hospitalization)
  Sender: FDA-Public Use
  Company Number: US-BAYER-2013-073458

PATIENT
  Age: 31 Year
  Sex: Female

DRUGS (60)
  1. YAZ [Suspect]
     Indication: ENDOMETRIOSIS
  2. YAZ [Suspect]
     Indication: POLYCYSTIC OVARIES
  3. YAZ [Suspect]
     Indication: ACNE
  4. YAZ [Suspect]
     Indication: CONTRACEPTION
  5. YASMIN [Suspect]
     Indication: ENDOMETRIOSIS
  6. OCELLA [Suspect]
  7. GIANVI [Suspect]
  8. BOTOX [Concomitant]
     Dosage: UNK
     Dates: start: 20120501
  9. FLUTICASONE PROPIONATE [Concomitant]
     Dosage: UNK
     Dates: start: 20120502
  10. FLUTICASONE PROPIONATE [Concomitant]
     Dosage: UNK
     Dates: start: 20120412
  11. REQUIP [Concomitant]
     Dosage: UNK
     Dates: start: 20120412
  12. ROPINIROLE [Concomitant]
     Dosage: UNK
     Dates: start: 20120312
  13. METHYLPHENIDATE HYDROCHLORIDE [Concomitant]
     Dosage: UNK
     Dates: start: 20120322
  14. METHYLPHENIDATE HYDROCHLORIDE [Concomitant]
     Dosage: UNK
     Dates: start: 20120412
  15. MULTIVITAMIN [Concomitant]
     Dosage: UNK
     Dates: start: 20120302, end: 20120412
  16. MULTIVITAMIN [Concomitant]
     Dosage: UNK
     Dates: start: 20120412
  17. LACTAID [Concomitant]
     Dosage: UNK
     Dates: start: 20120302
  18. LACTAID [Concomitant]
     Dosage: UNK
     Dates: start: 20120412
  19. VITAMIN D [Concomitant]
     Dosage: UNK
     Dates: start: 20120322
  20. VITAMIN D [Concomitant]
     Dosage: UNK
     Dates: start: 20120412
  21. RESTASIS [Concomitant]
     Dosage: UNK
     Dates: start: 20120302
  22. RESTASIS [Concomitant]
     Dosage: UNK
     Dates: start: 20120412
  23. BENTYL [Concomitant]
     Dosage: UNK
     Dates: start: 20120302
  24. BENTYL [Concomitant]
     Dosage: UNK
     Dates: start: 20120412
  25. PROTONIX [Concomitant]
     Dosage: UNK
     Dates: start: 20120302
  26. PROTONIX [Concomitant]
     Dosage: UNK
     Dates: start: 20120412
  27. TOPROL XL [Concomitant]
     Dosage: UNK
     Dates: start: 20120302
  28. TOPROL XL [Concomitant]
     Dosage: UNK
     Dates: start: 20120412
  29. ZANAFLEX [Concomitant]
     Dosage: UNK
     Dates: start: 20120302
  30. ZANAFLEX [Concomitant]
     Dosage: UNK
     Dates: start: 20120412
  31. TIZANIDINE [Concomitant]
     Dosage: UNK
     Dates: start: 20120223
  32. TIZANIDINE [Concomitant]
     Dosage: UNK
     Dates: start: 20120503
  33. EFFEXOR XR [Concomitant]
     Dosage: UNK
     Dates: start: 20120302
  34. EFFEXOR XR [Concomitant]
     Dosage: UNK
     Dates: start: 20120412
  35. TEMAZEPAM [Concomitant]
  36. RESTORIL [Concomitant]
     Dosage: UNK
     Dates: start: 20120302
  37. RESTORIL [Concomitant]
     Dosage: UNK
     Dates: start: 20120412
  38. VALIUM [Concomitant]
     Dosage: UNK
     Dates: start: 20120302
  39. VALIUM [Concomitant]
     Dosage: UNK
     Dates: start: 20120412
  40. PROMETHAZINE HYDROCHLORIDE [Concomitant]
     Dosage: UNK
     Dates: start: 20120302
  41. PROMETHAZINE HYDROCHLORIDE [Concomitant]
     Dosage: UNK
     Dates: start: 20120412
  42. ACETAMINOPHEN W/HYDROCODONE [Concomitant]
     Dosage: UNK
     Dates: start: 20120302
  43. ACETAMINOPHEN W/HYDROCODONE [Concomitant]
     Dosage: UNK
     Dates: start: 20120412
  44. AMBIEN [Concomitant]
     Dosage: UNK
     Dates: start: 20120322
  45. AMBIEN [Concomitant]
     Dosage: UNK
     Dates: start: 20120412
  46. METOPROLOL [Concomitant]
  47. VENLAFAXINE [Concomitant]
  48. PANTOPRAZOLE [Concomitant]
     Dosage: UNK
     Dates: start: 20120318
  49. LEVOFLOXACIN [Concomitant]
  50. ABILIFY [Concomitant]
  51. CONCERTA [Concomitant]
  52. EFFEXOR [Concomitant]
  53. PHENERGAN [Concomitant]
  54. OXYCODONE [Concomitant]
  55. NORCO [Concomitant]
  56. DILAUDID [Concomitant]
     Indication: PAIN
  57. JOLIVETTE-28 [Concomitant]
  58. LEVAQUIN [Concomitant]
  59. LOPRESSOR [Concomitant]
  60. GUAIFENESIN [Concomitant]

REACTIONS (2)
  - Pulmonary embolism [Recovered/Resolved]
  - Cholelithiasis [None]
